FAERS Safety Report 4809898-6 (Version None)
Quarter: 2005Q4

REPORT INFORMATION
  Report Type: 
  Country: None (occurrence: None)
  Receive Date: 20051026
  Receipt Date: 20051017
  Transmission Date: 20060501
  Serious: Yes (Hospitalization, Other)
  Sender: FDA-Public Use
  Company Number: JP-JNJFOC-20051000312

PATIENT
  Age: 64 Year
  Sex: Male

DRUGS (7)
  1. RISPERDAL [Suspect]
     Route: 048
  2. RISPERDAL [Suspect]
     Indication: SCHIZOPHRENIA
     Route: 048
  3. ALLOPURINOL [Suspect]
     Indication: DRUG USE FOR UNKNOWN INDICATION
     Route: 048
  4. PEROSPIRONE HYDROCHLORIDE HYDRATE [Concomitant]
     Route: 048
  5. PEROSPIRONE HYDROCHLORIDE HYDRATE [Concomitant]
     Indication: SCHIZOPHRENIA
     Route: 048
  6. PERPHENAZINE MALEATE [Concomitant]
     Route: 048
  7. PERPHENAZINE MALEATE [Concomitant]
     Indication: SCHIZOPHRENIA
     Route: 048

REACTIONS (2)
  - SHOCK [None]
  - STEVENS-JOHNSON SYNDROME [None]
